FAERS Safety Report 10242702 (Version 1)
Quarter: 2014Q2

REPORT INFORMATION
  Report Type: Report from Study
  Country: US (occurrence: US)
  Receive Date: 20140617
  Receipt Date: 20140617
  Transmission Date: 20141212
  Serious: Yes (Other)
  Sender: FDA-Public Use
  Company Number: US-ABBVIE-14P-163-1245746-00

PATIENT
  Age: 65 Year
  Sex: Female
  Weight: 113.5 kg

DRUGS (19)
  1. HUMIRA [Suspect]
     Indication: PSORIATIC ARTHROPATHY
     Dates: end: 2011
  2. HUMIRA [Suspect]
     Indication: PSORIATIC ARTHROPATHY
     Dates: start: 2011, end: 201310
  3. HUMIRA [Suspect]
     Dates: start: 201403
  4. ULTRAM [Suspect]
     Indication: PAIN
     Dates: start: 1991
  5. CELEBREX [Concomitant]
     Indication: OSTEOARTHRITIS
  6. CELEBREX [Concomitant]
     Indication: ARTHRALGIA
  7. CELEBREX [Concomitant]
     Indication: FIBROMYALGIA
  8. TOPROL [Concomitant]
     Indication: HEART RATE INCREASED
  9. TRIAMTERENE [Concomitant]
     Indication: FLUID RETENTION
  10. POTASSIUM CHLORIDE [Concomitant]
     Indication: BLOOD POTASSIUM DECREASED
  11. ZYRTEC [Concomitant]
     Indication: HYPERSENSITIVITY
  12. BABY ASPIRIN [Concomitant]
     Indication: CARDIAC DISORDER
  13. BABY ASPIRIN [Concomitant]
     Indication: PROPHYLAXIS
  14. METOPROLOL  ER [Concomitant]
     Indication: HEART RATE INCREASED
  15. MONTELUKAST [Concomitant]
     Indication: ASTHMA
  16. NORTRIPTYLINE [Concomitant]
     Indication: FIBROMYALGIA
  17. NEXIUM [Concomitant]
     Indication: GASTROOESOPHAGEAL REFLUX DISEASE
  18. ASMANEX [Concomitant]
     Indication: ASTHMA
  19. FLUTICASONE PROPIONATE [Concomitant]
     Indication: ASTHMA

REACTIONS (16)
  - Spinal column stenosis [Not Recovered/Not Resolved]
  - Intervertebral disc protrusion [Recovered/Resolved]
  - Bone disorder [Recovered/Resolved]
  - Nerve compression [Recovered/Resolved]
  - Device dislocation [Recovered/Resolved]
  - Pain in extremity [Recovered/Resolved]
  - Peroneal nerve palsy [Not Recovered/Not Resolved]
  - Fall [Recovered/Resolved]
  - Joint injury [Recovered/Resolved]
  - Pruritus [Not Recovered/Not Resolved]
  - Fall [Recovered/Resolved]
  - Fall [Recovered/Resolved]
  - Head injury [Recovered/Resolved]
  - Muscle spasms [Not Recovered/Not Resolved]
  - Gait disturbance [Not Recovered/Not Resolved]
  - Joint injury [Recovered/Resolved]
